FAERS Safety Report 8965100 (Version 1)
Quarter: 2012Q4

REPORT INFORMATION
  Report Type: 
  Country: US (occurrence: US)
  Receive Date: 20121213
  Receipt Date: 20121213
  Transmission Date: 20130627
  Serious: No
  Sender: FDA-Public Use
  Company Number: US-BRISTOL-MYERS SQUIBB COMPANY-17012741

PATIENT
  Sex: Female

DRUGS (5)
  1. PRAVASTATIN SODIUM [Suspect]
  2. METOPROLOL TARTRATE [Suspect]
  3. ASPIRIN [Suspect]
  4. PLAVIX [Suspect]
     Route: 048
  5. ENALAPRIL [Suspect]

REACTIONS (1)
  - Hypoaesthesia [Unknown]
